FAERS Safety Report 21438619 (Version 1)
Quarter: 2022Q4

REPORT INFORMATION
  Report Type: Spontaneous
  Country: DE (occurrence: DE)
  Receive Date: 20221011
  Receipt Date: 20221011
  Transmission Date: 20230113
  Serious: No
  Sender: FDA-Public Use
  Company Number: DE-ALKEM LABORATORIES LIMITED-DE-ALKEM-2022-09909

PATIENT
  Sex: Female

DRUGS (1)
  1. IBUPROFEN [Suspect]
     Active Substance: IBUPROFEN
     Indication: Sinusitis
     Dosage: UNK, QD (EVERY 1 DAY)
     Route: 065

REACTIONS (3)
  - Muscle spasms [Unknown]
  - Pain [Unknown]
  - Product use in unapproved indication [Unknown]
